FAERS Safety Report 6003256-7 (Version None)
Quarter: 2008Q4

REPORT INFORMATION
  Report Type: 
  Country: None (occurrence: None)
  Receive Date: 20081216
  Receipt Date: 20081204
  Transmission Date: 20090506
  Serious: Yes (Other)
  Sender: FDA-Public Use
  Company Number: HQWYE586322SEP05

PATIENT
  Sex: Female

DRUGS (6)
  1. PREMPRO [Suspect]
  2. MEDROXYPROGESTERONE ACETATE [Suspect]
  3. PREFEST [Suspect]
  4. ACTIVELLA [Suspect]
  5. PROVERA [Suspect]
  6. CLIMARA [Suspect]

REACTIONS (1)
  - BREAST CANCER METASTATIC [None]
